FAERS Safety Report 4392015-7 (Version None)
Quarter: 2004Q3

REPORT INFORMATION
  Report Type: 
  Country: None (occurrence: None)
  Receive Date: 20040702
  Receipt Date: 20040628
  Transmission Date: 20050211
  Serious: Yes (Other)
  Sender: FDA-Public Use
  Company Number: US-JNJFOC-20040607624

PATIENT
  Age: 45 Year
  Sex: Female

DRUGS (4)
  1. MOTRIN IB [Suspect]
     Dosage: 600 MG, 1 IN 1 DAY, ORAL
     Route: 048
     Dates: start: 20030301
  2. LEXAPRO [Concomitant]
  3. PROVIGIL [Concomitant]
  4. UNSPECIFIED PAIN MEDICATION (ANALGESICS) [Concomitant]

REACTIONS (2)
  - DRUG DEPENDENCE [None]
  - MEDICATION ERROR [None]
